FAERS Safety Report 12804312 (Version 1)
Quarter: 2016Q4

REPORT INFORMATION
  Report Type: Report from Study
  Country: US (occurrence: US)
  Receive Date: 20161003
  Receipt Date: 20161003
  Transmission Date: 20170207
  Serious: Yes (Hospitalization, Other)
  Sender: FDA-Public Use
  Company Number: US-GILEAD-2016-0235113

PATIENT
  Age: 66 Year
  Sex: Female

DRUGS (1)
  1. LEDIPASVIR/SOFOSBUVIR [Suspect]
     Active Substance: LEDIPASVIR\SOFOSBUVIR
     Indication: HEPATITIS C
     Dosage: UNK
     Route: 048
     Dates: start: 20151001, end: 20160101

REACTIONS (7)
  - Malaise [Unknown]
  - Asthenia [Unknown]
  - Urinary tract infection [Recovered/Resolved]
  - Memory impairment [Unknown]
  - Renal failure [Recovered/Resolved]
  - Apathy [Unknown]
  - Alopecia [Unknown]

NARRATIVE: CASE EVENT DATE: 201511
